FAERS Safety Report 5830762-8 (Version None)
Quarter: 2008Q3

REPORT INFORMATION
  Report Type: 
  Country: None (occurrence: None)
  Receive Date: 20080801
  Receipt Date: 20071113
  Transmission Date: 20090109
  Serious: No
  Sender: FDA-Public Use
  Company Number: US-BRISTOL-MYERS SQUIBB COMPANY-13981212

PATIENT
  Age: 64 Year
  Sex: Female
  Weight: 50 kg

DRUGS (3)
  1. COUMADIN [Suspect]
     Indication: THROMBOSIS
     Route: 048
     Dates: start: 20070921
  2. SYNTHROID [Concomitant]
  3. ATIVAN [Concomitant]

REACTIONS (5)
  - DIZZINESS [None]
  - DRY SKIN [None]
  - EPISTAXIS [None]
  - PARAESTHESIA [None]
  - WEIGHT DECREASED [None]
